FAERS Safety Report 6170502-9 (Version None)
Quarter: 2009Q2

REPORT INFORMATION
  Report Type: 
  Country: None (occurrence: None)
  Receive Date: 20090427
  Receipt Date: 20090427
  Transmission Date: 20091009
  Serious: Yes (Life-Threatening)
  Sender: FDA-Public Use
  Company Number: None

PATIENT
  Age: 62 Year
  Sex: Female
  Weight: 74 kg

DRUGS (6)
  1. METYRAPONE [Suspect]
     Indication: PITUITARY-DEPENDENT CUSHING'S SYNDROME
     Dosage: 750 MG PO Q 6
     Dates: start: 20081219, end: 20081231
  2. KETOCONAZOLE [Concomitant]
  3. POTASSIUM CHLORIDE [Concomitant]
  4. SPIRONOLACTONE [Concomitant]
  5. LISINOPRIL [Concomitant]
  6. INSULATARD NPH HUMAN [Concomitant]

REACTIONS (1)
  - ADRENOCORTICAL INSUFFICIENCY ACUTE [None]
